FAERS Safety Report 18424327 (Version 1)
Quarter: 2020Q4

REPORT INFORMATION
  Report Type: Report from Study
  Country: None (occurrence: US)
  Receive Date: 20201025
  Receipt Date: 20201025
  Transmission Date: 20210114
  Serious: Yes (Hospitalization, Other)
  Sender: FDA-Public Use
  Company Number: US-ABBVIE-20K-163-3619042-00

PATIENT
  Sex: Female

DRUGS (1)
  1. HUMIRA [Suspect]
     Active Substance: ADALIMUMAB
     Indication: COLITIS ULCERATIVE
     Route: 058

REACTIONS (8)
  - Rib fracture [Unknown]
  - Crohn^s disease [Unknown]
  - COVID-19 [Unknown]
  - Neoplasm malignant [Unknown]
  - Head injury [Unknown]
  - Pneumonia [Unknown]
  - Infection [Unknown]
  - Concussion [Unknown]
